FAERS Safety Report 7608148-5 (Version None)
Quarter: 2011Q3

REPORT INFORMATION
  Report Type: 
  Country: None (occurrence: None)
  Receive Date: 20110714
  Receipt Date: 20110630
  Transmission Date: 20111222
  Serious: Yes (Other)
  Sender: FDA-Public Use
  Company Number: US-RB-026753-11

PATIENT
  Age: 78 Year
  Sex: Female

DRUGS (1)
  1. MUCINEX DM [Suspect]
     Route: 048
     Dates: start: 20110625

REACTIONS (1)
  - DIARRHOEA HAEMORRHAGIC [None]
